FAERS Safety Report 8152511-3 (Version None)
Quarter: 2012Q1

REPORT INFORMATION
  Report Type: 
  Country: None (occurrence: None)
  Receive Date: 20120221
  Receipt Date: 20120210
  Transmission Date: 20120608
  Serious: Yes (Hospitalization)
  Sender: FDA-Public Use
  Company Number: JP-VERTEX PHARMACEUTICALS INC.-AE-2012-002250

PATIENT
  Age: 48 Year
  Sex: Female

DRUGS (1)
  1. VX-950 [Suspect]
     Indication: HEPATITIS C
     Route: 048
     Dates: start: 20120124, end: 20120210

REACTIONS (1)
  - GASTROINTESTINAL DISORDER [None]
